FAERS Safety Report 4783626-5 (Version None)
Quarter: 2005Q3

REPORT INFORMATION
  Report Type: 
  Country: None (occurrence: None)
  Receive Date: 20050929
  Receipt Date: 20050905
  Transmission Date: 20060218
  Serious: Yes (Life-Threatening, Hospitalization, Other)
  Sender: FDA-Public Use
  Company Number: MT-JNJFOC-20050902382

PATIENT
  Age: 80 Year
  Sex: Female

DRUGS (3)
  1. REMINYL [Suspect]
     Route: 065
  2. AMARYL [Suspect]
     Indication: DRUG USE FOR UNKNOWN INDICATION
     Route: 065
  3. LESCOL [Concomitant]
     Indication: HYPERCHOLESTEROLAEMIA
     Route: 048

REACTIONS (3)
  - DRUG DISPENSING ERROR [None]
  - HYPOGLYCAEMIA [None]
  - MEDICATION ERROR [None]
